FAERS Safety Report 5854665-8 (Version None)
Quarter: 2008Q3

REPORT INFORMATION
  Report Type: 
  Country: None (occurrence: None)
  Receive Date: 20080822
  Receipt Date: 20080813
  Transmission Date: 20090109
  Serious: No
  Sender: FDA-Public Use
  Company Number: GB-PFIZER INC-2008067397

PATIENT

DRUGS (3)
  1. NELFINAVIR MESILATE [Suspect]
     Indication: PANCREATIC CARCINOMA
     Route: 048
  2. CISPLATIN [Suspect]
     Indication: PANCREATIC CARCINOMA
     Dosage: DAILY DOSE:30MG
  3. GEMCITABINE [Suspect]
     Indication: PANCREATIC CARCINOMA
     Dosage: DAILY DOSE:200MG

REACTIONS (1)
  - NO ADVERSE EVENT [None]
